FAERS Safety Report 6841196-1 (Version None)
Quarter: 2010Q3

REPORT INFORMATION
  Report Type: 
  Country: None (occurrence: None)
  Receive Date: 20100714
  Receipt Date: 20070830
  Transmission Date: 20110219
  Serious: No
  Sender: FDA-Public Use
  Company Number: US-PFIZER INC-2007052987

PATIENT
  Age: 64 Year
  Sex: Female
  Weight: 86.4 kg

DRUGS (1)
  1. CHANTIX [Suspect]
     Indication: SMOKING CESSATION THERAPY
     Dates: start: 20070619

REACTIONS (1)
  - UPPER RESPIRATORY TRACT INFECTION [None]
